FAERS Safety Report 9130295 (Version 1)
Quarter: 2013Q1

REPORT INFORMATION
  Report Type: Spontaneous
  Country: US (occurrence: US)
  Receive Date: 20130301
  Receipt Date: 20130301
  Transmission Date: 20140127
  Serious: Yes (Other)
  Sender: FDA-Public Use
  Company Number: US-SANOFI-AVENTIS-2013SA019781

PATIENT
  Age: 40 Year
  Sex: Female

DRUGS (2)
  1. LOVENOX [Suspect]
  2. LOVENOX [Suspect]

REACTIONS (4)
  - Thrombosis [Unknown]
  - Exposure during pregnancy [Unknown]
  - Infection [Unknown]
  - Contusion [Unknown]
